FAERS Safety Report 9643203 (Version 3)
Quarter: 2013Q4

REPORT INFORMATION
  Report Type: Spontaneous
  Country: FR (occurrence: FR)
  Receive Date: 20131024
  Receipt Date: 20131120
  Transmission Date: 20140711
  Serious: Yes (Hospitalization)
  Sender: FDA-Public Use
  Company Number: FR-PFIZER INC-2013296929

PATIENT
  Age: 73 Year
  Sex: Male

DRUGS (12)
  1. ARACYTINE [Suspect]
     Indication: MANTLE CELL LYMPHOMA STAGE IV
     Dosage: 2000 MG/M2, CYCLIC (TWICE DAILY FOR 2 DAYS EVERY 21 DAYS (DAYS 2 AND 3))
     Route: 042
     Dates: start: 20130821, end: 20130821
  2. ARACYTINE [Suspect]
     Dosage: 2000 MG/M2, CYCLIC (TWICE DAILY FOR 2 DAYS EVERY 21 DAYS (DAYS 2 AND 3))
     Route: 042
     Dates: start: 20130822, end: 20130822
  3. MABTHERA [Suspect]
     Indication: MANTLE CELL LYMPHOMA STAGE IV
     Dosage: 375 MG/M2, EVERY 21 DAYS  (DAY 1)
     Route: 042
     Dates: start: 20130820
  4. METHYLPREDNISOLONE MYLAN [Suspect]
     Dosage: 40 MG, CYCLIC (DAY 1)
     Route: 042
     Dates: start: 20130820
  5. VALSARTAN [Concomitant]
     Dosage: 160 UNK, 1X/DAY
  6. ESIDREX [Concomitant]
     Dosage: 25 UNK, 1X/DAY
  7. SERETIDE [Concomitant]
     Dosage: 2 DF(250/25), 2X/DAY
  8. LEXOMIL [Concomitant]
     Dosage: 0.25 UNK, DAILY
  9. ZYLORIC [Concomitant]
     Dosage: 300 UNK, 2X/DAY
  10. RENAGEL [Concomitant]
     Dosage: 800 UNK, 3X/DAY
  11. PRIMPERAN [Concomitant]
     Dosage: 10 UNK, UNK
  12. FORLAX [Concomitant]
     Dosage: 4000 UNK, AS NEEDED

REACTIONS (1)
  - Acute coronary syndrome [Recovered/Resolved with Sequelae]
